FAERS Safety Report 18509902 (Version 1)
Quarter: 2020Q4

REPORT INFORMATION
  Report Type: Spontaneous
  Country: US (occurrence: US)
  Receive Date: 20201117
  Receipt Date: 20201117
  Transmission Date: 20210114
  Serious: Yes (Other)
  Sender: FDA-Public Use
  Company Number: US-009507513-2011USA008834

PATIENT
  Age: 72 Year
  Sex: Female
  Weight: 88 kg

DRUGS (11)
  1. CYANOCOBALAMIN. [Concomitant]
     Active Substance: CYANOCOBALAMIN
     Indication: PROPHYLAXIS
     Dosage: 1000 MILLIGRAM, QD
     Route: 048
  2. PLAVIX [Concomitant]
     Active Substance: CLOPIDOGREL BISULFATE
     Indication: ANTICOAGULANT THERAPY
     Dosage: 75 MILLIGRAM, QD
     Route: 048
     Dates: start: 2006
  3. LOVENOX [Concomitant]
     Active Substance: ENOXAPARIN SODIUM
     Indication: SURGERY
     Dosage: AS REQUIRED
     Route: 058
     Dates: start: 2012
  4. CHOLECALCIFEROL [Concomitant]
     Active Substance: CHOLECALCIFEROL
     Indication: PROPHYLAXIS
     Dosage: 1000 MILLIGRAM, QD
     Route: 048
  5. PRINIVIL [Suspect]
     Active Substance: LISINOPRIL
     Indication: HYPERTENSION
     Dosage: 10 MILLIGRAM, QD
     Route: 048
     Dates: start: 2000
  6. CRESTOR [Suspect]
     Active Substance: ROSUVASTATIN CALCIUM
     Indication: BLOOD CHOLESTEROL INCREASED
     Dosage: 5 MILLIGRAM, QD
     Route: 048
     Dates: start: 2006
  7. SULFAZINE [Concomitant]
     Active Substance: SULFASALAZINE
     Indication: COLITIS ULCERATIVE
     Dosage: 500 MILLIGRAM, QID
     Route: 048
  8. FISH OIL [Concomitant]
     Active Substance: FISH OIL
     Indication: PROPHYLAXIS
     Dosage: 2400 MILLIGRAM, QD
     Route: 048
  9. IFENPRODIL TARTRATE [Concomitant]
     Active Substance: IFENPRODIL TARTRATE
     Indication: BLOOD IRON DECREASED
     Dosage: 220 MILLIGRAM, QD
     Route: 048
     Dates: start: 2012
  10. CALCIUM (UNSPECIFIED) [Concomitant]
     Active Substance: CALCIUM
     Indication: PROPHYLAXIS
     Dosage: 600 MILLIGRAM, TWO TIMES A DAY
     Route: 048
     Dates: start: 1955
  11. FOLIC ACID. [Concomitant]
     Active Substance: FOLIC ACID
     Indication: ABDOMINAL DISCOMFORT
     Dosage: 800 MILLIGRAM, QD
     Route: 048
     Dates: start: 1963

REACTIONS (18)
  - Visual impairment [Unknown]
  - Face injury [Unknown]
  - Eye haemorrhage [Unknown]
  - Joint range of motion decreased [Unknown]
  - Condition aggravated [Unknown]
  - Dyspnoea [Unknown]
  - Cataract [Unknown]
  - Retinal artery occlusion [Unknown]
  - Blood cholesterol increased [Unknown]
  - Abdominal discomfort [Unknown]
  - Haematemesis [Unknown]
  - Immune system disorder [Unknown]
  - Susac^s syndrome [Unknown]
  - Cerebrovascular accident [Unknown]
  - Blood iron decreased [Unknown]
  - Stress [Unknown]
  - Blindness unilateral [Unknown]
  - Erythema [Unknown]

NARRATIVE: CASE EVENT DATE: 2006
